FAERS Safety Report 5145874-4 (Version None)
Quarter: 2006Q4

REPORT INFORMATION
  Report Type: 
  Country: None (occurrence: None)
  Receive Date: 20061108
  Receipt Date: 20061025
  Transmission Date: 20070319
  Serious: Yes (Hospitalization)
  Sender: FDA-Public Use
  Company Number: US-AMGEN-STX198174

PATIENT
  Sex: Female
  Weight: 71.7 kg

DRUGS (2)
  1. ENBREL [Suspect]
     Indication: RHEUMATOID ARTHRITIS
     Route: 058
     Dates: start: 20001201
  2. METHOTREXATE [Concomitant]
     Route: 065

REACTIONS (9)
  - ANAEMIA [None]
  - BIOPSY LIVER [None]
  - CHOLECYSTECTOMY [None]
  - INJECTION SITE BRUISING [None]
  - INJECTION SITE PAIN [None]
  - PLATELET COUNT DECREASED [None]
  - PORTAL HYPERTENSION [None]
  - POST PROCEDURAL BILE LEAK [None]
  - POST PROCEDURAL HAEMORRHAGE [None]
